FAERS Safety Report 6007794-2 (Version None)
Quarter: 2008Q4

REPORT INFORMATION
  Report Type: 
  Country: None (occurrence: None)
  Receive Date: 20081217
  Receipt Date: 20080609
  Transmission Date: 20090506
  Serious: No
  Sender: FDA-Public Use
  Company Number: US-ASTRAZENECA-2008UW11587

PATIENT
  Age: 65 Year
  Sex: Male
  Weight: 83.9 kg

DRUGS (16)
  1. CRESTOR [Suspect]
     Indication: BLOOD CHOLESTEROL INCREASED
     Route: 048
  2. GLIPIZIDE [Concomitant]
  3. FUROSEMIDE [Concomitant]
  4. METFORMIN HCL [Concomitant]
  5. FLUOXETINE [Concomitant]
  6. WARFARIN SODIUM [Concomitant]
  7. TERAZOSIN HCL [Concomitant]
  8. LEVOTHROID [Concomitant]
  9. MICRO-K [Concomitant]
  10. ALLOPURINOL [Concomitant]
  11. ISOSORBIDE [Concomitant]
  12. TRIAMTERENE AND HYDROCHLOROTHIAZIDE [Concomitant]
  13. WARFARIN SODIUM [Concomitant]
  14. ASPIRIN [Concomitant]
  15. METOPROLOL TARTRATE [Concomitant]
  16. HYDROCODONE BITARTRATE [Concomitant]
     Dosage: 1 BID

REACTIONS (1)
  - DIVERTICULITIS [None]
